FAERS Safety Report 20052759 (Version 1)
Quarter: 2021Q4

REPORT INFORMATION
  Report Type: Spontaneous
  Country: US (occurrence: None)
  Receive Date: 20211109
  Receipt Date: 20211109
  Transmission Date: 20220303
  Serious: Yes (Other)
  Sender: FDA-Public Use
  Company Number: None

PATIENT
  Age: 46 Year
  Sex: Female
  Weight: 117 kg

DRUGS (1)
  1. REGEN-COV [Suspect]
     Active Substance: CASIRIVIMAB\IMDEVIMAB
     Indication: COVID-19
     Dosage: OTHER FREQUENCY : ONCE;?
     Route: 041
     Dates: start: 20211102, end: 20211102

REACTIONS (7)
  - Back pain [None]
  - Abdominal pain lower [None]
  - Pain [None]
  - Pelvic pain [None]
  - Chest pain [None]
  - Dizziness [None]
  - Infusion related reaction [None]

NARRATIVE: CASE EVENT DATE: 20211102
